FAERS Safety Report 9648344 (Version 2)
Quarter: 2013Q4

REPORT INFORMATION
  Report Type: Spontaneous
  Country: DE (occurrence: DE)
  Receive Date: 20131028
  Receipt Date: 20131028
  Transmission Date: 20140711
  Serious: Yes (Other)
  Sender: FDA-Public Use
  Company Number: DE-PURDUE-DEU-2013-0010200

PATIENT
  Sex: Male

DRUGS (3)
  1. OXYGESIC 40 MG [Suspect]
     Indication: RESTLESS LEGS SYNDROME
     Dosage: 40 MG, BID
     Route: 048
     Dates: start: 2012
  2. OXYGESIC 40 MG [Suspect]
     Indication: PERIOPERATIVE ANALGESIA
  3. OXYGESIC 40 MG [Suspect]
     Indication: PAIN

REACTIONS (1)
  - Parkinson^s disease [Unknown]
